FAERS Safety Report 11439255 (Version 1)
Quarter: 2015Q3

REPORT INFORMATION
  Report Type: Spontaneous
  Country: US (occurrence: US)
  Receive Date: 20150901
  Receipt Date: 20150901
  Transmission Date: 20151125
  Serious: No
  Sender: FDA-Public Use
  Company Number: US-ROCHE-1072123

PATIENT
  Age: 33 Year
  Sex: Female

DRUGS (3)
  1. PEGASYS [Suspect]
     Active Substance: PEGINTERFERON ALFA-2A
     Indication: CHRONIC HEPATITIS C
     Route: 065
     Dates: start: 20120518, end: 20120827
  2. INCIVEK [Suspect]
     Active Substance: TELAPREVIR
     Indication: CHRONIC HEPATITIS C
     Route: 065
     Dates: start: 20120518, end: 20120827
  3. RIBAVIRIN. [Suspect]
     Active Substance: RIBAVIRIN
     Indication: CHRONIC HEPATITIS C
     Route: 065
     Dates: start: 20120518, end: 20120827

REACTIONS (11)
  - Gastrointestinal tract irritation [Unknown]
  - Eye disorder [Unknown]
  - Headache [Unknown]
  - Weight decreased [Unknown]
  - Rectal ulcer [Unknown]
  - Dehydration [Unknown]
  - Asthenia [Unknown]
  - Visual impairment [Unknown]
  - Sneezing [Unknown]
  - Diarrhoea [Unknown]
  - Fatigue [Unknown]

NARRATIVE: CASE EVENT DATE: 20120519
